FAERS Safety Report 6306838-8 (Version None)
Quarter: 2009Q3

REPORT INFORMATION
  Report Type: 
  Country: None (occurrence: None)
  Receive Date: 20090812
  Receipt Date: 20081008
  Transmission Date: 20100115
  Serious: Yes (Disabling, Other)
  Sender: FDA-Public Use
  Company Number: US-PFIZER INC-2008085227

PATIENT
  Sex: Male
  Weight: 99.773 kg

DRUGS (2)
  1. DILANTIN-125 [Suspect]
     Indication: CONVULSION
     Dosage: 400 MG, 1X/DAY
  2. PRIMIDONE [Suspect]
     Indication: CONVULSION
     Dosage: 250 MG, 2X/DAY

REACTIONS (2)
  - AMNESIA [None]
  - DEPRESSION [None]
